FAERS Safety Report 10325428 (Version 2)
Quarter: 2015Q1

REPORT INFORMATION
  Report Type: Other
  Country: US (occurrence: US)
  Receive Date: 20140720
  Receipt Date: 20150319
  Transmission Date: 20150720
  Serious: Yes (Hospitalization, Other)
  Sender: FDA-Public Use
  Company Number: US-GSKPPD-2014GSK020311

PATIENT
  Age: 74 Year
  Sex: Male

DRUGS (5)
  1. TOPROL XL [Concomitant]
     Active Substance: METOPROLOL SUCCINATE
  2. AVANDIA [Suspect]
     Active Substance: ROSIGLITAZONE MALEATE
     Indication: DIABETES MELLITUS
     Dosage: DATES OF AVANDIA COULD NOT BE CONFIRMED FROM RECORDS REVIEWED
     Route: 048
  3. CARDURA [Concomitant]
     Active Substance: DOXAZOSIN MESYLATE
  4. LASIX [Concomitant]
     Active Substance: FUROSEMIDE
  5. BENICAR HCTZ [Concomitant]
     Dosage: 40 PER 25 MG

REACTIONS (1)
  - Cardiac failure congestive [Recovered/Resolved]

NARRATIVE: CASE EVENT DATE: 20051008
